FAERS Safety Report 9305598 (Version 1)
Quarter: 2013Q2

REPORT INFORMATION
  Report Type: Report from Study
  Country: US (occurrence: US)
  Receive Date: 20130523
  Receipt Date: 20130523
  Transmission Date: 20140414
  Serious: Yes (Other)
  Sender: FDA-Public Use
  Company Number: US-ROCHE-1224033

PATIENT
  Sex: Female
  Weight: 81.72 kg

DRUGS (13)
  1. CEFTRIAXONE [Suspect]
     Indication: LOCALISED INFECTION
     Route: 065
  2. HUMIRA [Suspect]
     Indication: PSORIATIC ARTHROPATHY
     Route: 065
     Dates: start: 2007, end: 2011
  3. HUMIRA [Suspect]
     Route: 065
     Dates: start: 2012, end: 2012
  4. MORPHINE [Concomitant]
     Indication: PAIN
     Route: 065
  5. VICODIN [Concomitant]
     Indication: PAIN
     Route: 065
  6. GABAPENTIN [Concomitant]
     Indication: PAIN
     Route: 065
  7. IBUPROFEN [Concomitant]
     Indication: PAIN
     Route: 065
  8. VENLAFAXINE [Concomitant]
     Indication: DEPRESSION
     Route: 065
  9. BUPROPION [Concomitant]
     Indication: DEPRESSION
     Route: 065
  10. ESTRADIOL [Concomitant]
     Route: 065
  11. FOLIC ACID [Concomitant]
     Route: 065
  12. METHOTREXATE [Concomitant]
     Indication: PSORIATIC ARTHROPATHY
     Route: 065
  13. PREDNISONE [Concomitant]
     Indication: PSORIATIC ARTHROPATHY
     Route: 065

REACTIONS (9)
  - Foot fracture [Recovered/Resolved]
  - Hypoaesthesia [Recovered/Resolved]
  - Foot fracture [Recovered/Resolved]
  - Wound [Recovered/Resolved]
  - Localised infection [Recovered/Resolved]
  - Osteomyelitis [Recovered/Resolved]
  - Anaphylactic shock [Recovered/Resolved]
  - Pyrexia [Recovered/Resolved]
  - Abscess [Recovered/Resolved]
